FAERS Safety Report 6751491-2 (Version None)
Quarter: 2010Q2

REPORT INFORMATION
  Report Type: 
  Country: None (occurrence: None)
  Receive Date: 20100602
  Receipt Date: 20100520
  Transmission Date: 20101027
  Serious: Yes (Hospitalization)
  Sender: FDA-Public Use
  Company Number: GB-ELI_LILLY_AND_COMPANY-GB201005005517

PATIENT
  Sex: Male

DRUGS (11)
  1. PEMETREXED [Suspect]
     Indication: NON-SMALL CELL LUNG CANCER
     Dosage: UNK, UNKNOWN
     Route: 042
     Dates: start: 20090911
  2. CISPLATIN [Suspect]
     Indication: NON-SMALL CELL LUNG CANCER
     Dosage: UNK, UNKNOWN
     Route: 042
     Dates: start: 20090911, end: 20091113
  3. FOLIC ACID [Concomitant]
     Indication: PROPHYLAXIS
     Dates: start: 20090828
  4. VITAMIN B-12 [Concomitant]
     Indication: PROPHYLAXIS
     Dates: start: 20090828
  5. DEXAMETHASONE [Concomitant]
     Indication: PROPHYLAXIS
     Dates: start: 20090828
  6. ENALAPRIL [Concomitant]
     Indication: HYPERTENSION
     Dates: start: 20090101
  7. BENDROFLUMETHIAZIDE [Concomitant]
     Indication: HYPERTENSION
     Dosage: 215 MG, DAILY (1/D)
     Dates: start: 20090101
  8. AMITRIPTYLINE [Concomitant]
     Indication: ANALGESIC THERAPY
     Dosage: 25 MG, DAILY (1/D)
     Dates: start: 20090101
  9. TRAMADOL [Concomitant]
     Indication: ANALGESIC THERAPY
     Dosage: 100 MG, 4/D
     Dates: start: 20090101
  10. LACTULOSE [Concomitant]
     Indication: CONSTIPATION
     Dates: start: 20090101
  11. SENOKOT [Concomitant]
     Indication: CONSTIPATION
     Dates: start: 20100101

REACTIONS (2)
  - BLOOD ELECTROLYTES ABNORMAL [None]
  - BLOOD UREA ABNORMAL [None]
